FAERS Safety Report 12283650 (Version 1)
Quarter: 2016Q2

REPORT INFORMATION
  Report Type: Not Available
  Country: None (occurrence: US)
  Receive Date: 20160419
  Receipt Date: 20160419
  Transmission Date: 20160815
  Serious: No
  Sender: FDA-Public Use
  Company Number: US-AKORN-22898

PATIENT
  Sex: Female

DRUGS (1)
  1. THERATEARS STERILID [Suspect]
     Active Substance: TEA TREE OIL

REACTIONS (6)
  - Skin burning sensation [Recovered/Resolved]
  - Application site pain [None]
  - Erythema of eyelid [Unknown]
  - Pain of skin [Unknown]
  - Product quality issue [None]
  - Application site erythema [None]

NARRATIVE: CASE EVENT DATE: 20160120
